FAERS Safety Report 5701876-8 (Version None)
Quarter: 2008Q2

REPORT INFORMATION
  Report Type: 
  Country: None (occurrence: None)
  Receive Date: 20080411
  Receipt Date: 20080402
  Transmission Date: 20081010
  Serious: Yes (Death, Other)
  Sender: FDA-Public Use
  Company Number: US-BRISTOL-MYERS SQUIBB COMPANY-14081335

PATIENT
  Age: 60 Year
  Sex: Female

DRUGS (6)
  1. ORENCIA [Suspect]
     Indication: RHEUMATOID ARTHRITIS
     Dosage: THERAPY DATES:18OCT07;01NOV07;15NOV07;30JAN08.
     Route: 042
     Dates: start: 20071018, end: 20080130
  2. PREDNISOLONE [Concomitant]
  3. MELOXICAM [Concomitant]
  4. TRAMADOL HCL [Concomitant]
  5. OXYCODONE HCL [Concomitant]
  6. METOPROLOL TARTRATE [Concomitant]

REACTIONS (3)
  - DEATH [None]
  - HYPOTENSION [None]
  - PNEUMOTHORAX [None]
